FAERS Safety Report 7018206-4 (Version None)
Quarter: 2010Q3

REPORT INFORMATION
  Report Type: 
  Country: None (occurrence: None)
  Receive Date: 20100928
  Receipt Date: 20100917
  Transmission Date: 20110219
  Serious: No
  Sender: FDA-Public Use
  Company Number: KR-JNJFOC-20100905510

PATIENT
  Age: 72 Year
  Sex: Female

DRUGS (3)
  1. DURAGESIC-100 [Suspect]
     Indication: PAIN
     Route: 062
  2. MOTILIUM [Concomitant]
     Indication: VOMITING
     Route: 048
  3. MOTILIUM [Concomitant]
     Indication: NAUSEA
     Route: 048

REACTIONS (4)
  - APPLICATION SITE PRURITUS [None]
  - DRUG ADMINISTRATION ERROR [None]
  - NAUSEA [None]
  - THERAPY CESSATION [None]
